FAERS Safety Report 10905016 (Version 4)
Quarter: 2015Q2

REPORT INFORMATION
  Report Type: Spontaneous
  Country: US (occurrence: US)
  Receive Date: 20150311
  Receipt Date: 20150622
  Transmission Date: 20150821
  Serious: Yes (Hospitalization, Other)
  Sender: FDA-Public Use
  Company Number: US-009507513-1111USA01289

PATIENT
  Sex: Female

DRUGS (3)
  1. BONIVA [Suspect]
     Active Substance: IBANDRONATE SODIUM
     Indication: BONE DENSITY DECREASED
     Dosage: 150 MG, UNK
     Route: 048
     Dates: start: 20080529, end: 20090501
  2. FOSAMAX [Suspect]
     Active Substance: ALENDRONATE SODIUM
     Indication: BONE DENSITY DECREASED
     Dosage: 70 MG, QW
     Route: 048
     Dates: start: 20020227, end: 20050528
  3. BONIVA [Suspect]
     Active Substance: IBANDRONATE SODIUM
     Dosage: 150 MG, UNK
     Route: 048
     Dates: start: 20090420, end: 20100526

REACTIONS (12)
  - Pain in extremity [Unknown]
  - Osteopenia [Unknown]
  - Cholecystectomy [Unknown]
  - Cluster headache [Unknown]
  - Femur fracture [Unknown]
  - Aneurysm [Unknown]
  - Hypercholesterolaemia [Unknown]
  - Fracture nonunion [Unknown]
  - Seborrhoeic keratosis [Unknown]
  - Blood pressure increased [Unknown]
  - Intramedullary rod insertion [Unknown]
  - Migraine [Unknown]

NARRATIVE: CASE EVENT DATE: 2006
